FAERS Safety Report 23325317 (Version 2)
Quarter: 2024Q2

REPORT INFORMATION
  Report Type: Report from Study
  Country: DE (occurrence: DE)
  Receive Date: 20231221
  Receipt Date: 20240523
  Transmission Date: 20240716
  Serious: Yes (Other)
  Sender: FDA-Public Use
  Company Number: None

PATIENT
  Age: 59 Year
  Sex: Female
  Weight: 66 kg

DRUGS (4)
  1. FULVESTRANT [Suspect]
     Active Substance: FULVESTRANT
     Indication: Breast cancer metastatic
     Dosage: 500 MG, QMO
     Dates: start: 20191029
  2. RIBOCICLIB [Suspect]
     Active Substance: RIBOCICLIB
     Indication: Breast cancer metastatic
     Dosage: 600 MG, QD
     Dates: start: 20191029
  3. RIBOCICLIB [Suspect]
     Active Substance: RIBOCICLIB
     Indication: Breast cancer metastatic
     Dates: start: 20221223
  4. FULVESTRANT [Suspect]
     Active Substance: FULVESTRANT
     Indication: Breast cancer metastatic
     Dosage: UNK
     Dates: start: 20221223

REACTIONS (4)
  - Neutropenia [Recovered/Resolved]
  - Polyneuropathy [Recovered/Resolved]
  - Skin toxicity [Recovered/Resolved]
  - Dry skin [Recovered/Resolved]

NARRATIVE: CASE EVENT DATE: 20200120
